FAERS Safety Report 7890496-5 (Version None)
Quarter: 2011Q4

REPORT INFORMATION
  Report Type: 
  Country: None (occurrence: None)
  Receive Date: 20111103
  Receipt Date: 20110722
  Transmission Date: 20120403
  Serious: No
  Sender: FDA-Public Use
  Company Number: US-AMGEN-USASP2011036620

PATIENT
  Age: 56 Year
  Sex: Female

DRUGS (3)
  1. ENBREL [Suspect]
     Indication: RHEUMATOID ARTHRITIS
     Dosage: 25 MG, QMO
     Dates: start: 20030401
  2. HUMIRA [Concomitant]
  3. SIMPONI [Concomitant]

REACTIONS (8)
  - ARTHRALGIA [None]
  - INJECTION SITE PAIN [None]
  - WEIGHT BEARING DIFFICULTY [None]
  - INJECTION SITE REACTION [None]
  - JOINT SWELLING [None]
  - INJECTION SITE SWELLING [None]
  - INJECTION SITE ERYTHEMA [None]
  - INJECTION SITE PRURITUS [None]
